FAERS Safety Report 9129200 (Version 1)
Quarter: 2013Q1

REPORT INFORMATION
  Report Type: Spontaneous
  Country: CN (occurrence: CN)
  Receive Date: 20130125
  Receipt Date: 20130125
  Transmission Date: 20140127
  Serious: Yes (Other)
  Sender: FDA-Public Use
  Company Number: PHHY2012CN125435

PATIENT
  Age: 28 Year
  Sex: Male
  Weight: 62 kg

DRUGS (1)
  1. VOTALIN [Suspect]
     Indication: MUSCLE INJURY
     Dosage: 0.2 G, QID
     Route: 061
     Dates: start: 20110314, end: 20110315

REACTIONS (3)
  - Anaphylactoid reaction [Recovered/Resolved]
  - Flushing [Recovered/Resolved]
  - Pruritus [Recovered/Resolved]
